FAERS Safety Report 5836755-9 (Version None)
Quarter: 2008Q3

REPORT INFORMATION
  Report Type: 
  Country: None (occurrence: None)
  Receive Date: 20080807
  Receipt Date: 20080806
  Transmission Date: 20090109
  Serious: Yes (Death, Hospitalization)
  Sender: FDA-Public Use
  Company Number: PHHO2005CN11647

PATIENT
  Sex: Male
  Weight: 70 kg

DRUGS (3)
  1. MYCOPHENOLATE MOFETIL [Suspect]
     Indication: RENAL TRANSPLANT
     Dosage: 1000 MG, BID
     Route: 048
     Dates: start: 20050429, end: 20050619
  2. MYCOPHENOLATE MOFETIL [Suspect]
     Dosage: DRUG DOSE DECREASED
     Dates: start: 20050620, end: 20050703
  3. NEORAL [Suspect]
     Indication: RENAL TRANSPLANT
     Dosage: 100 MG, BID
     Route: 048
     Dates: start: 20050428

REACTIONS (4)
  - LIFE SUPPORT [None]
  - LUNG INFECTION [None]
  - PYREXIA [None]
  - RESPIRATORY FAILURE [None]
